FAERS Safety Report 18637431 (Version 2)
Quarter: 2021Q1

REPORT INFORMATION
  Report Type: Spontaneous
  Country: US (occurrence: US)
  Receive Date: 20201218
  Receipt Date: 20210126
  Transmission Date: 20210419
  Serious: Yes (Other)
  Sender: FDA-Public Use
  Company Number: US-ASTRAZENECA-2020SF66739

PATIENT
  Age: 781 Month
  Sex: Female
  Weight: 74.8 kg

DRUGS (3)
  1. SYMBICORT [Suspect]
     Active Substance: BUDESONIDE\FORMOTEROL FUMARATE DIHYDRATE
     Indication: ASTHMA
     Dosage: 80/4.5 MCG , AS NEEDED (SOMETIMES DAILY, SOMETIMES A FEW TIMES A MONTH, DEPENDS ON BREATHING) AS ...
     Route: 055
     Dates: start: 2015
  2. VITAMIN D [Concomitant]
     Active Substance: VITAMIN D NOS
     Route: 065
  3. MULTI?VITAMIN [Concomitant]
     Active Substance: .ALPHA.-TOCOPHEROL ACETATE, DL-\ASCORBIC ACID\CYANOCOBALAMIN\FLUORIDE ION\FOLIC ACID\NIACIN\PYRIDOXINE\RIBOFLAVIN\THIAMINE\VITAMIN A\VITAMIN D
     Route: 065

REACTIONS (10)
  - Pneumonia [Recovered/Resolved]
  - COVID-19 [Recovered/Resolved]
  - Nasopharyngitis [Recovered/Resolved]
  - Wrong technique in device usage process [Unknown]
  - Off label use [Unknown]
  - Device defective [Unknown]
  - Hand fracture [Unknown]
  - Bronchitis [Unknown]
  - Dyspnoea [Unknown]
  - Intentional device misuse [Unknown]

NARRATIVE: CASE EVENT DATE: 2020
